FAERS Safety Report 9199596 (Version 1)
Quarter: 2013Q1

REPORT INFORMATION
  Report Type: Report from Study
  Country: US (occurrence: US)
  Receive Date: 20130329
  Receipt Date: 20130329
  Transmission Date: 20140127
  Serious: Yes (Hospitalization)
  Sender: FDA-Public Use
  Company Number: US-ABBOTT-13P-163-1067234-00

PATIENT
  Age: 44 Year
  Sex: Male

DRUGS (3)
  1. HUMIRA [Suspect]
     Indication: COLITIS ULCERATIVE
     Dates: start: 20121025
  2. LIALDA [Concomitant]
     Indication: CROHN^S DISEASE
     Dosage: DAILY
  3. LIALDA [Concomitant]
     Dates: start: 2013

REACTIONS (5)
  - Gastrointestinal pain [Recovered/Resolved]
  - Gastrointestinal haemorrhage [Recovered/Resolved]
  - Colitis ulcerative [Recovered/Resolved]
  - Inappropriate schedule of drug administration [Unknown]
  - Gastrointestinal oedema [Unknown]
